FAERS Safety Report 4700471-7 (Version None)
Quarter: 2005Q2

REPORT INFORMATION
  Report Type: 
  Country: None (occurrence: None)
  Receive Date: 20050624
  Receipt Date: 20050610
  Transmission Date: 20051028
  Serious: Yes (Hospitalization)
  Sender: FDA-Public Use
  Company Number: 11606

PATIENT

DRUGS (1)
  1. METHOTREXATE [Suspect]
     Dosage: PO
     Route: 048

REACTIONS (2)
  - ACCIDENTAL OVERDOSE [None]
  - PHARYNGITIS [None]
